FAERS Safety Report 10754895 (Version 7)
Quarter: 2015Q3

REPORT INFORMATION
  Report Type: Spontaneous
  Country: US (occurrence: US)
  Receive Date: 20150202
  Receipt Date: 20150910
  Transmission Date: 20151125
  Serious: Yes (Other)
  Sender: FDA-Public Use
  Company Number: US-PFIZER INC-2015033541

PATIENT
  Age: 65 Year
  Sex: Male
  Weight: 110 kg

DRUGS (12)
  1. SUTENT [Suspect]
     Active Substance: SUNITINIB MALATE
     Indication: HAEMANGIOPERICYTOMA
     Dosage: 50 MG DAILY CYCLIC, FOR 4 WEEKS ON AND 2 WEEKS OFF
     Route: 048
     Dates: start: 20150122, end: 2015
  2. BACTRIM [Concomitant]
     Active Substance: SULFAMETHOXAZOLE\TRIMETHOPRIM
     Dosage: UNK
  3. HYDROCODONE [Concomitant]
     Active Substance: HYDROCODONE
     Dosage: 7.5/325 AS NEEDED
  4. GLIPIZIDE. [Concomitant]
     Active Substance: GLIPIZIDE
     Dosage: UNK
  5. PIROXICAM. [Concomitant]
     Active Substance: PIROXICAM
     Dosage: UNK
  6. VICTOZA [Concomitant]
     Active Substance: LIRAGLUTIDE
     Dosage: UNK
  7. SUTENT [Suspect]
     Active Substance: SUNITINIB MALATE
     Dosage: 37.5 MG, UNK
     Dates: start: 2015, end: 20150319
  8. METFORMIN [Concomitant]
     Active Substance: METFORMIN HYDROCHLORIDE
     Dosage: UNK
  9. CLARITIN [Concomitant]
     Active Substance: LORATADINE
     Dosage: UNK
  10. LYRICA [Concomitant]
     Active Substance: PREGABALIN
     Dosage: UNK
  11. ENALAPRIL [Concomitant]
     Active Substance: ENALAPRIL
     Dosage: UNK
  12. ATORVASTATIN [Concomitant]
     Active Substance: ATORVASTATIN
     Dosage: UNK

REACTIONS (10)
  - Dyspepsia [Unknown]
  - Testicular pain [Unknown]
  - Genital blister [Unknown]
  - Palmar-plantar erythrodysaesthesia syndrome [Recovered/Resolved]
  - Cerebrovascular accident [Unknown]
  - Urticaria [Unknown]
  - Pruritus [Unknown]
  - Product use issue [Unknown]
  - Disease progression [Unknown]
  - Haemangiopericytoma [Unknown]

NARRATIVE: CASE EVENT DATE: 2015
